FAERS Safety Report 7129143-9 (Version None)
Quarter: 2010Q4

REPORT INFORMATION
  Report Type: 
  Country: None (occurrence: None)
  Receive Date: 20101130
  Receipt Date: 20101122
  Transmission Date: 20110411
  Serious: Yes (Hospitalization, Other)
  Sender: FDA-Public Use
  Company Number: US-SANOFI-AVENTIS-2010SA071040

PATIENT
  Age: 74 Year
  Sex: Male

DRUGS (6)
  1. LANTUS [Suspect]
     Indication: DIABETES MELLITUS
     Dosage: ONCE EVERY MORNING DOSE:35 UNIT(S)
     Route: 058
  2. LANTUS [Suspect]
     Dosage: 20 UNITS IN THE MORNING, 10 UNITS IN THE EVENING
     Route: 058
  3. LANTUS [Suspect]
     Dosage: AT 12PM DOSE:30 UNIT(S)
     Route: 058
  4. LANTUS [Suspect]
     Dosage: DOSE:25 UNIT(S)
     Route: 058
  5. LANTUS [Suspect]
     Dosage: DOSE:22 UNIT(S)
     Route: 058
  6. LANTUS [Suspect]
     Dosage: DOSE:20 UNIT(S)
     Route: 058

REACTIONS (6)
  - ABDOMINAL PAIN UPPER [None]
  - BLOOD GLUCOSE DECREASED [None]
  - DYSPEPSIA [None]
  - GALLBLADDER DISORDER [None]
  - GLYCOSYLATED HAEMOGLOBIN INCREASED [None]
  - HYPOGLYCAEMIC UNCONSCIOUSNESS [None]
